FAERS Safety Report 14912986 (Version 1)
Quarter: 2018Q2

REPORT INFORMATION
  Report Type: Spontaneous
  Country: CN (occurrence: CN)
  Receive Date: 20180518
  Receipt Date: 20180518
  Transmission Date: 20180711
  Serious: Yes (Death, Other)
  Sender: FDA-Public Use
  Company Number: CN-009507513-1805CHN006363

PATIENT
  Age: 42 Year
  Sex: Female

DRUGS (5)
  1. CASPOFUNGIN ACETATE. [Suspect]
     Active Substance: CASPOFUNGIN ACETATE
     Dosage: 50 MG, QD
     Route: 042
  2. AMPHOTERICIN B. [Concomitant]
     Active Substance: AMPHOTERICIN B
     Dosage: 10 MG, Q8H
     Route: 055
  3. VORICONAZOLE. [Concomitant]
     Active Substance: VORICONAZOLE
     Indication: BRONCHOPULMONARY ASPERGILLOSIS
     Dosage: 6 MG/KG, Q12H
     Route: 042
  4. VORICONAZOLE. [Concomitant]
     Active Substance: VORICONAZOLE
     Dosage: 4 MG/KG, Q12H
     Route: 042
  5. CASPOFUNGIN ACETATE. [Suspect]
     Active Substance: CASPOFUNGIN ACETATE
     Indication: BRONCHOPULMONARY ASPERGILLOSIS
     Dosage: 70 MG, QD
     Route: 042

REACTIONS (2)
  - Bronchopulmonary aspergillosis [Fatal]
  - Drug ineffective [Unknown]
